FAERS Safety Report 19165941 (Version 1)
Quarter: 2021Q2

REPORT INFORMATION
  Report Type: Spontaneous
  Country: FI (occurrence: FI)
  Receive Date: 20210422
  Receipt Date: 20210422
  Transmission Date: 20210717
  Serious: Yes (Other)
  Sender: FDA-Public Use
  Company Number: FI-ROCHE-2814678

PATIENT
  Sex: Female

DRUGS (3)
  1. XOLAIR [Suspect]
     Active Substance: OMALIZUMAB
     Indication: PRODUCT USED FOR UNKNOWN INDICATION
     Dosage: UNK
     Route: 065
     Dates: start: 2016
  2. XOLAIR [Suspect]
     Active Substance: OMALIZUMAB
     Dosage: UNK, EVERY 5 WEEK
     Route: 065
  3. XOLAIR [Suspect]
     Active Substance: OMALIZUMAB
     Dosage: UNK, EVERY 4 WEEK
     Route: 065
     Dates: start: 201703

REACTIONS (2)
  - Off label use [Unknown]
  - Systemic lupus erythematosus [Unknown]
